FAERS Safety Report 4954857-6 (Version None)
Quarter: 2006Q1

REPORT INFORMATION
  Report Type: 
  Country: None (occurrence: None)
  Receive Date: 20060327
  Receipt Date: 20051209
  Transmission Date: 20060701
  Serious: Yes (Death)
  Sender: FDA-Public Use
  Company Number: US-MERCK-0512USA01720

PATIENT
  Age: 72 Year
  Sex: Male

DRUGS (31)
  1. VIOXX [Suspect]
     Indication: BACK PAIN
     Route: 048
     Dates: start: 20000222, end: 20040102
  2. DESOWEN [Concomitant]
     Route: 065
  3. LOPROX [Concomitant]
     Route: 065
  4. NITROQUICK [Concomitant]
     Route: 065
  5. VASOTEC RPD [Concomitant]
     Route: 065
  6. PENTOXIFYLLINE [Concomitant]
     Route: 065
  7. ISOSORBIDE MONONITRATE [Concomitant]
     Route: 065
  8. CEPHALEXIN HYDROCHLORIDE [Concomitant]
     Route: 065
  9. PRINIVIL [Concomitant]
     Route: 065
  10. ASPIRIN [Concomitant]
     Route: 065
  11. ZITHROMAX [Concomitant]
     Route: 065
  12. TUSSIONEX [Concomitant]
     Route: 065
  13. CEFTIN [Concomitant]
     Route: 065
  14. DESONIDE [Concomitant]
     Route: 065
  15. NIZORAL [Concomitant]
     Route: 065
  16. DOXYCYCLINE [Concomitant]
     Route: 065
  17. ALBUTEROL [Concomitant]
     Route: 065
  18. LEVAQUIN [Concomitant]
     Route: 065
  19. ACYCLOVIR [Concomitant]
     Route: 065
  20. NYSTATIN [Concomitant]
     Route: 065
  21. DEXAMETHASONE [Concomitant]
     Route: 065
  22. NIZORAL [Concomitant]
     Route: 065
  23. LISINOPRIL [Concomitant]
     Route: 065
  24. CAVERJECT [Concomitant]
     Route: 065
  25. DICLOXACILLIN [Concomitant]
     Route: 065
  26. TYLENOL W/ CODEINE [Concomitant]
     Route: 065
  27. BIAXIN XL [Concomitant]
     Route: 065
  28. EDEX [Concomitant]
     Indication: ERECTILE DYSFUNCTION
     Route: 065
  29. PLAVIX [Concomitant]
     Indication: MYOCARDIAL INFARCTION
     Route: 065
  30. PLAVIX [Concomitant]
     Indication: PROPHYLAXIS
     Route: 065
  31. PLETAL [Concomitant]
     Indication: ANALGESIC EFFECT
     Route: 065

REACTIONS (4)
  - ACUTE MYOCARDIAL INFARCTION [None]
  - AORTIC ANEURYSM [None]
  - CAROTID ARTERY DISEASE [None]
  - CORONARY ARTERY DISEASE [None]
